FAERS Safety Report 5257227-9 (Version None)
Quarter: 2007Q1

REPORT INFORMATION
  Report Type: 
  Country: None (occurrence: None)
  Receive Date: 20070307
  Receipt Date: 20070228
  Transmission Date: 20070707
  Serious: Yes (Hospitalization, Other)
  Sender: FDA-Public Use
  Company Number: GB-JNJFOC-20070300029

PATIENT
  Sex: Male
  Weight: 94 kg

DRUGS (5)
  1. REMICADE [Suspect]
     Indication: RHEUMATOID ARTHRITIS
     Route: 042
  2. DOXAZOSIN MESYLATE [Concomitant]
  3. FOLIC ACID [Concomitant]
  4. ISTIN [Concomitant]
  5. METHOTREXATE [Concomitant]

REACTIONS (2)
  - KNEE ARTHROPLASTY [None]
  - THROMBOSIS [None]
